FAERS Safety Report 7900232-1 (Version None)
Quarter: 2011Q4

REPORT INFORMATION
  Report Type: 
  Country: None (occurrence: None)
  Receive Date: 20111104
  Receipt Date: 20111020
  Transmission Date: 20120403
  Serious: Yes (Hospitalization)
  Sender: FDA-Public Use
  Company Number: 2011SGN00170

PATIENT
  Age: 23 Year
  Sex: Female
  Weight: 59.2 kg

DRUGS (2)
  1. SGN-35 (CAC10-VCMMAE) INJECTION BRENTUXIMAB [Suspect]
     Indication: HODGKIN'S DISEASE
     Dosage: 1.8 MG/KG,Q21D
     Dates: start: 20110613, end: 20110726
  2. FAMVIR [Concomitant]

REACTIONS (9)
  - HAEMOGLOBIN DECREASED [None]
  - COLITIS [None]
  - PLATELET COUNT DECREASED [None]
  - PSEUDOMEMBRANOUS COLITIS [None]
  - NEUTROPHIL PERCENTAGE INCREASED [None]
  - DIARRHOEA [None]
  - NAUSEA [None]
  - WHITE BLOOD CELL COUNT INCREASED [None]
  - CANDIDA TEST POSITIVE [None]
